FAERS Safety Report 9596326 (Version 1)
Quarter: 2013Q4

REPORT INFORMATION
  Report Type: Spontaneous
  Country: US (occurrence: US)
  Receive Date: 20131004
  Receipt Date: 20131004
  Transmission Date: 20140711
  Serious: Yes (Other)
  Sender: FDA-Public Use
  Company Number: US-TEVA-436090USA

PATIENT
  Age: 37 Year
  Sex: Female
  Weight: 77.63 kg

DRUGS (4)
  1. PARAGARD 380A [Suspect]
     Indication: CONTRACEPTION
     Route: 015
     Dates: start: 20130820
  2. CITALOPRAM [Concomitant]
     Indication: AFFECTIVE DISORDER
     Dosage: DAILY
     Route: 048
  3. UNKNOWN INHALER [Concomitant]
     Indication: ASTHMA
     Route: 055
  4. IMITREX [Concomitant]
     Indication: MIGRAINE
     Dosage: PRN

REACTIONS (1)
  - Device dislocation [Not Recovered/Not Resolved]
